FAERS Safety Report 9204821 (Version 2)
Quarter: 2013Q2

REPORT INFORMATION
  Report Type: Report from Study
  Country: DE (occurrence: DE)
  Receive Date: 20130402
  Receipt Date: 20130416
  Transmission Date: 20140414
  Serious: Yes (Hospitalization)
  Sender: FDA-Public Use
  Company Number: DE-AMGEN-DEUCT2013021923

PATIENT
  Age: 67 Year
  Sex: Female
  Weight: 67 kg

DRUGS (7)
  1. ETANERCEPT [Suspect]
     Indication: RHEUMATOID ARTHRITIS
     Dosage: 50 MG, QWK
     Dates: start: 20080304
  2. LEFLUNOMIDE [Concomitant]
     Indication: RHEUMATOID ARTHRITIS
     Dosage: 20 MG, DAILY
     Dates: start: 2002
  3. MICARDIS [Concomitant]
     Indication: HYPERTENSION
     Dosage: 80 MG, 1X/DAY
     Route: 048
     Dates: start: 2003
  4. ARITEL PLUS [Concomitant]
     Indication: HYPERTENSION
     Dosage: 5 MG / 12.5 MG
     Dates: start: 2003
  5. OMEPRAZOL                          /00661201/ [Concomitant]
     Indication: PROPHYLAXIS
     Dosage: 20 MG, 1X/DAY
     Dates: start: 2003
  6. SIMVASTATIN [Concomitant]
     Indication: BLOOD CHOLESTEROL
     Dosage: 80 MG, 1X/DAY
     Dates: start: 2001
  7. MERIGEST [Concomitant]
     Indication: ARRHYTHMIA
     Dosage: HALF A TABLET DAILY

REACTIONS (1)
  - Osteoarthritis [Unknown]
